FAERS Safety Report 4987668-6 (Version None)
Quarter: 2006Q2

REPORT INFORMATION
  Report Type: 
  Country: None (occurrence: None)
  Receive Date: 20060501
  Receipt Date: 20060123
  Transmission Date: 20061013
  Serious: Yes (Hospitalization)
  Sender: FDA-Public Use
  Company Number: PHNU2006DE00664

PATIENT
  Sex: Male

DRUGS (4)
  1. CELEBREX [Concomitant]
     Indication: MUSCULOSKELETAL PAIN
  2. IBUPROFEN [Concomitant]
     Indication: MUSCULOSKELETAL PAIN
  3. DIOVAN [Suspect]
     Indication: HYPERTENSION
     Dosage: 80 MG, QD
     Route: 048
     Dates: start: 20040101, end: 20050401
  4. DIOVAN [Suspect]
     Dosage: 160 MG, QD
     Route: 048
     Dates: start: 20050401

REACTIONS (5)
  - COUGH [None]
  - PROSTATE CANCER [None]
  - PROSTATIC SPECIFIC ANTIGEN INCREASED [None]
  - PYREXIA [None]
  - URINARY TRACT INFECTION BACTERIAL [None]
